FAERS Safety Report 18053672 (Version 1)
Quarter: 2020Q3

REPORT INFORMATION
  Report Type: Spontaneous
  Country: GB (occurrence: GB)
  Receive Date: 20200722
  Receipt Date: 20200722
  Transmission Date: 20201103
  Serious: Yes (Other)
  Sender: FDA-Public Use
  Company Number: GB-ACCORD-191516

PATIENT
  Age: 45 Year
  Sex: Female
  Weight: 118.83 kg

DRUGS (5)
  1. EVACAL D3 [Concomitant]
  2. MEBEVERINE [Concomitant]
     Active Substance: MEBEVERINE
  3. LEVOTHYROXINE. [Concomitant]
     Active Substance: LEVOTHYROXINE
  4. PARACETAMOL [Concomitant]
     Active Substance: ACETAMINOPHEN
  5. HYDROXYCHLOROQUINE [Suspect]
     Active Substance: HYDROXYCHLOROQUINE
     Indication: SJOGREN^S SYNDROME
     Route: 048
     Dates: start: 20200626

REACTIONS (5)
  - Ear pain [Recovered/Resolved with Sequelae]
  - Tension [Recovered/Resolved with Sequelae]
  - Nausea [Unknown]
  - Headache [Recovered/Resolved with Sequelae]
  - Arthralgia [Unknown]

NARRATIVE: CASE EVENT DATE: 20200629
